FAERS Safety Report 9890362 (Version 3)
Quarter: 2014Q1

REPORT INFORMATION
  Report Type: Spontaneous
  Country: AU (occurrence: AU)
  Receive Date: 20140212
  Receipt Date: 20140306
  Transmission Date: 20141002
  Serious: Yes (Hospitalization, Disabling)
  Sender: FDA-Public Use
  Company Number: AU-ASTRAZENECA-2014SE01785

PATIENT
  Age: 22799 Day
  Sex: Female

DRUGS (3)
  1. SEROQUEL IR [Suspect]
     Indication: DEPRESSION
     Route: 048
     Dates: start: 20130504, end: 20140112
  2. ANTIBIOTICS [Concomitant]
     Indication: CYSTITIS
     Route: 042
  3. MIRTAZAPINE [Concomitant]
     Dates: end: 201310

REACTIONS (2)
  - Liver function test abnormal [Recovering/Resolving]
  - Lung disorder [Unknown]
